FAERS Safety Report 24970361 (Version 1)
Quarter: 2025Q1

REPORT INFORMATION
  Report Type: Report from Study
  Country: US (occurrence: US)
  Receive Date: 20250214
  Receipt Date: 20250214
  Transmission Date: 20250409
  Serious: Yes (Death)
  Sender: BAYER HEALTHCARE PHARMACEUTICALS INC.
  Company Number: US-BAYER-2025A021696

PATIENT
  Age: 77 Year
  Sex: Female
  Weight: 84.354 kg

DRUGS (16)
  1. ADEMPAS [Suspect]
     Active Substance: RIOCIGUAT
     Indication: Pulmonary arterial hypertension
     Dates: start: 20190926
  2. ADEMPAS [Suspect]
     Active Substance: RIOCIGUAT
     Indication: Pulmonary arterial hypertension
     Dosage: 2 MG, TID
     Route: 048
  3. METOPROLOL TARTRATE [Concomitant]
     Active Substance: METOPROLOL TARTRATE
  4. TRADJENTA [Concomitant]
     Active Substance: LINAGLIPTIN
  5. RITUXAN [Concomitant]
     Active Substance: RITUXIMAB
  6. POTASSIUM CHLORIDE [Concomitant]
     Active Substance: POTASSIUM CHLORIDE
  7. LOVASTATIN [Concomitant]
     Active Substance: LOVASTATIN
  8. HUMALOG [Concomitant]
     Active Substance: INSULIN LISPRO
  9. ELIQUIS [Concomitant]
     Active Substance: APIXABAN
  10. LANTUS SOLOSTAR [Concomitant]
     Active Substance: INSULIN GLARGINE
  11. CEPHALEXIN [Concomitant]
     Active Substance: CEPHALEXIN
  12. BUMETANIDE [Concomitant]
     Active Substance: BUMETANIDE
  13. DIGOXIN [Concomitant]
     Active Substance: DIGOXIN
  14. OMEPRAZOLE [Concomitant]
     Active Substance: OMEPRAZOLE
  15. LEVOTHYROXINE SODIUM [Concomitant]
     Active Substance: LEVOTHYROXINE SODIUM
  16. LOSARTAN POTASSIUM [Concomitant]
     Active Substance: LOSARTAN POTASSIUM

REACTIONS (1)
  - Death [Fatal]

NARRATIVE: CASE EVENT DATE: 20250207
